FAERS Safety Report 5053571-9 (Version None)
Quarter: 2006Q3

REPORT INFORMATION
  Report Type: 
  Country: None (occurrence: None)
  Receive Date: 20060718
  Receipt Date: 20060705
  Transmission Date: 20061208
  Serious: Yes (Hospitalization)
  Sender: FDA-Public Use
  Company Number: AU-BRISTOL-MYERS SQUIBB COMPANY-13433776

PATIENT
  Age: 73 Year
  Sex: Female
  Weight: 65 kg

DRUGS (10)
  1. CARBOPLATIN [Suspect]
     Indication: NON-SMALL CELL LUNG CANCER
     Route: 042
     Dates: start: 20060412, end: 20060412
  2. PACLITAXEL [Suspect]
     Indication: NON-SMALL CELL LUNG CANCER
     Route: 042
     Dates: start: 20060412, end: 20060412
  3. SERETIDE [Concomitant]
     Route: 055
  4. WARFARIN SODIUM [Concomitant]
     Route: 048
  5. FUROSEMIDE [Concomitant]
     Route: 048
  6. THYROXINE [Concomitant]
     Route: 048
  7. DIGOXIN [Concomitant]
     Route: 048
  8. RAMIPRIL [Concomitant]
     Route: 048
  9. VENTOLIN [Concomitant]
     Route: 055
  10. FELODIPINE [Concomitant]
     Route: 048

REACTIONS (2)
  - ANXIETY [None]
  - DYSPNOEA [None]
